FAERS Safety Report 17926297 (Version 6)
Quarter: 2023Q2

REPORT INFORMATION
  Report Type: Spontaneous
  Country: US (occurrence: US)
  Receive Date: 20200623
  Receipt Date: 20230526
  Transmission Date: 20230721
  Serious: Yes (Death, Other)
  Sender: FDA-Public Use
  Company Number: US-TEVA-2020-US-1790497

PATIENT
  Age: 67 Year
  Sex: Female
  Weight: 87.54 kg

DRUGS (28)
  1. IRBESARTAN [Suspect]
     Active Substance: IRBESARTAN
     Indication: Hypertension
     Route: 065
     Dates: start: 20141008, end: 20141107
  2. IRBESARTAN [Suspect]
     Active Substance: IRBESARTAN
     Indication: Hypertension
     Dosage: IRBESARTAN SOLCO
     Route: 065
     Dates: start: 20140519, end: 20140618
  3. IRBESARTAN [Suspect]
     Active Substance: IRBESARTAN
     Route: 065
     Dates: start: 20140908, end: 20141008
  4. IRBESARTAN [Suspect]
     Active Substance: IRBESARTAN
     Indication: Hypertension
     Route: 065
     Dates: start: 20140618, end: 20140911
  5. HYDROCHLOROTHIAZIDE\LOSARTAN [Suspect]
     Active Substance: HYDROCHLOROTHIAZIDE\LOSARTAN
     Indication: Hypertension
     Dosage: 50-12.5 MG
     Route: 065
     Dates: start: 20160209, end: 20190127
  6. HYDROCHLOROTHIAZIDE\LOSARTAN [Suspect]
     Active Substance: HYDROCHLOROTHIAZIDE\LOSARTAN
     Dosage: 50-12.5 MG
     Route: 065
     Dates: start: 20160218, end: 20190519
  7. HYDROCHLOROTHIAZIDE\LOSARTAN [Suspect]
     Active Substance: HYDROCHLOROTHIAZIDE\LOSARTAN
     Indication: Hypertension
     Dosage: 50-12.5 MG
     Route: 065
     Dates: start: 20190602, end: 20190831
  8. ORENCIA [Concomitant]
     Active Substance: ABATACEPT
     Indication: Arthritis
     Dosage: 250MG INTRAVENOUS SOLUTION ONCE A MONTH
     Route: 042
     Dates: start: 2016, end: 2019
  9. METFORMIN HYDROCHLORIDE [Concomitant]
     Active Substance: METFORMIN HYDROCHLORIDE
     Indication: Diabetes mellitus
     Dosage: 1000 MILLIGRAM DAILY;
     Dates: start: 20090216, end: 2014
  10. GABAPENTIN [Concomitant]
     Active Substance: GABAPENTIN
     Indication: Product used for unknown indication
     Route: 048
  11. Humalog U-100 Insulin [Concomitant]
     Indication: Diabetes mellitus
     Dosage: 100 UNIT/ML, AS DIRECTED
     Route: 058
  12. ACETAMINOPHEN\HYDROCODONE [Concomitant]
     Active Substance: ACETAMINOPHEN\HYDROCODONE
     Indication: Product used for unknown indication
     Dosage: 7.5MG-325MG
     Route: 048
  13. LEVOTHYROXINE [Concomitant]
     Active Substance: LEVOTHYROXINE
     Indication: Thyroid disorder
     Route: 048
  14. LEVOTHYROXINE [Concomitant]
     Active Substance: LEVOTHYROXINE
     Dosage: 112MCG, DO NOT REMEMBER FREQUENCY OF USE
     Dates: start: 20090325, end: 2019
  15. LEVOTHYROXINE [Concomitant]
     Active Substance: LEVOTHYROXINE
     Dosage: 150MCG, DO NOT REMEMBER FREQUENCY OF USE
     Dates: start: 20090325, end: 2019
  16. LIDOCAINE\PRILOCAINE [Concomitant]
     Active Substance: LIDOCAINE\PRILOCAINE
     Indication: Product used for unknown indication
     Dosage: 2.5%-2.5%
     Route: 061
  17. METHOCARBAMOL [Concomitant]
     Active Substance: METHOCARBAMOL
     Indication: Muscle spasms
     Route: 048
  18. METHOCARBAMOL [Concomitant]
     Active Substance: METHOCARBAMOL
     Dosage: 500MG, DOES NOT REMEMBER THE FREQUENCY OF USE
     Dates: start: 20120625, end: 2019
  19. OXYBUTYNIN CHLORIDE [Concomitant]
     Active Substance: OXYBUTYNIN CHLORIDE
     Indication: Product used for unknown indication
     Route: 048
  20. PANTOPRAZOLE [Concomitant]
     Active Substance: PANTOPRAZOLE
     Indication: Product used for unknown indication
     Dosage: DELAYED RELEASE
     Route: 048
  21. SULFASALAZINE [Concomitant]
     Active Substance: SULFASALAZINE
     Indication: Product used for unknown indication
     Dosage: DELAYED RELEASE
     Route: 048
  22. VITAMIN D3 [Concomitant]
     Active Substance: CHOLECALCIFEROL
     Indication: Product used for unknown indication
     Dosage: 1000 UNIT
     Route: 048
  23. CELEBREX [Concomitant]
     Active Substance: CELECOXIB
     Indication: Arthritis
     Dosage: 400 MILLIGRAM DAILY; 200MG TWICE DAILY
     Dates: start: 20090101, end: 2012
  24. VITAMIN D2 [Concomitant]
     Active Substance: ERGOCALCIFEROL
     Indication: Prophylaxis
     Dosage: 1.25MG (50,000 UNIT) TAKEN ONCE A WEEK
     Dates: start: 20120221, end: 2020
  25. FISH OIL [Concomitant]
     Active Substance: FISH OIL
     Indication: Prophylaxis
     Dosage: 1000 MILLIGRAM DAILY; 1000MG TAKEN EVERY DAY
     Dates: end: 2020
  26. APIDRA [Concomitant]
     Active Substance: INSULIN GLULISINE
     Indication: Diabetes mellitus
     Dosage: 100 UNIT/ML, TAKEN DAILY AFTER EVERY MEAL
     Dates: start: 20090129, end: 2014
  27. MICARDIS HCT [Concomitant]
     Active Substance: HYDROCHLOROTHIAZIDE\TELMISARTAN
     Indication: Hypertension
     Dosage: 80-25MG DAILY
     Dates: start: 20090120, end: 201312
  28. OMEPRAZOLE [Concomitant]
     Active Substance: OMEPRAZOLE
     Indication: Gastrooesophageal reflux disease
     Dosage: 20MG DOES NOT REMEMBER THE FREQUENCY OF USE
     Dates: start: 20090115, end: 201411

REACTIONS (5)
  - Cholangiocarcinoma [Fatal]
  - Hepatic cancer metastatic [Fatal]
  - Oedema [Not Recovered/Not Resolved]
  - Fluid retention [Not Recovered/Not Resolved]
  - Renal disorder [Unknown]
